FAERS Safety Report 8840975 (Version 1)
Quarter: 2012Q4

REPORT INFORMATION
  Report Type: 
  Country: US (occurrence: US)
  Receive Date: 20121015
  Receipt Date: 20121015
  Transmission Date: 20130627
  Serious: Yes (Hospitalization)
  Sender: FDA-Public Use
  Company Number: US-ROCHE-1139898

PATIENT
  Sex: Male

DRUGS (1)
  1. NUTROPIN AQ [Suspect]
     Indication: GROWTH HORMONE DEFICIENCY
     Dosage: 0.54 cc
     Route: 058

REACTIONS (5)
  - Bronchitis [Unknown]
  - Sinusitis [Unknown]
  - Hunger [Unknown]
  - Mood swings [Unknown]
  - Gynaecomastia [Unknown]
